FAERS Safety Report 7996794 (Version 2)
Quarter: 2012Q4

REPORT INFORMATION
  Report Type: 
  Country: CA (occurrence: CA)
  Receive Date: 20110617
  Receipt Date: 20121111
  Transmission Date: 20130627
  Serious: Yes (Death)
  Sender: FDA-Public Use
  Company Number: PHHY2008CA03144

PATIENT
  Age: 48 Year
  Sex: Male

DRUGS (1)
  1. SANDOSTATINE LAR [Suspect]
     Indication: CARCINOID TUMOUR
     Dosage: 30 mg, every 4 week
     Route: 030
     Dates: start: 20061106

REACTIONS (2)
  - Death [Fatal]
  - Blood glucose increased [Unknown]
